FAERS Safety Report 6653383-6 (Version None)
Quarter: 2010Q1

REPORT INFORMATION
  Report Type: 
  Country: None (occurrence: None)
  Receive Date: 20100326
  Receipt Date: 20100317
  Transmission Date: 20100710
  Serious: Yes (Other)
  Sender: FDA-Public Use
  Company Number: PHHY2010GB07548

PATIENT
  Sex: Male
  Weight: 105 kg

DRUGS (2)
  1. TEGRETOL [Suspect]
     Dosage: 800 MG/DAY
  2. TEGRETOL [Suspect]
     Dosage: UNK

REACTIONS (3)
  - DRUG DISPENSING ERROR [None]
  - GRAND MAL CONVULSION [None]
  - WRONG DRUG ADMINISTERED [None]
